FAERS Safety Report 8994839 (Version 2)
Quarter: 2013Q1

REPORT INFORMATION
  Report Type: Spontaneous
  Country: US (occurrence: None)
  Receive Date: 20121221
  Receipt Date: 20121231
  Transmission Date: 20140127
  Serious: Yes (Hospitalization, Disabling)
  Sender: FDA-Public Use
  Company Number: JPI-P-026894

PATIENT
  Age: 61 Year
  Sex: Female

DRUGS (3)
  1. XYREM [Suspect]
     Indication: FIBROMYALGIA
     Dosage: (2.25 GM, 2 IN 1 D)
     Route: 048
     Dates: start: 20051028
  2. CYCLOBENZAPRINE [Concomitant]
  3. NAPROXEN [Concomitant]

REACTIONS (9)
  - Central nervous system infection [None]
  - Convulsion [None]
  - Local swelling [None]
  - Local swelling [None]
  - Muscle spasms [None]
  - Fall [None]
  - Headache [None]
  - Brain oedema [None]
  - Motor dysfunction [None]
